FAERS Safety Report 17567953 (Version 3)
Quarter: 2020Q2

REPORT INFORMATION
  Report Type: Report from Study
  Country: None (occurrence: DE)
  Receive Date: 20200320
  Receipt Date: 20200508
  Transmission Date: 20200713
  Serious: Yes (Hospitalization, Disabling, Other)
  Sender: FDA-Public Use
  Company Number: DE-ABBVIE-20K-062-3324004-00

PATIENT
  Age: 54 Year
  Sex: Female
  Weight: 69 kg

DRUGS (8)
  1. IRON [Concomitant]
     Active Substance: IRON
     Indication: MINERAL SUPPLEMENTATION
  2. SINGULAIR [Concomitant]
     Active Substance: MONTELUKAST SODIUM
     Indication: PRODUCT USED FOR UNKNOWN INDICATION
     Dosage: JUNIOR
  3. VIANI [Concomitant]
     Active Substance: FLUTICASONE PROPIONATE\SALMETEROL XINAFOATE
     Indication: PRODUCT USED FOR UNKNOWN INDICATION
     Dosage: 25UG/250 UG, SUSPENSION,? FORTE
  4. DERMESTRIL SEPTEM [Concomitant]
     Indication: PRODUCT USED FOR UNKNOWN INDICATION
  5. HUMIRA [Suspect]
     Active Substance: ADALIMUMAB
     Indication: CROHN^S DISEASE
     Route: 058
     Dates: start: 201804, end: 20200331
  6. L-THYROXIN 1A PHARMA [Concomitant]
     Indication: HYPOTHYROIDISM
  7. RABEPRAZOL PUREN [Concomitant]
     Active Substance: RABEPRAZOLE SODIUM
     Indication: PRODUCT USED FOR UNKNOWN INDICATION
  8. VASOSAN S [Concomitant]
     Indication: PRODUCT USED FOR UNKNOWN INDICATION

REACTIONS (50)
  - Haematochezia [Unknown]
  - Respiratory distress [Unknown]
  - Pulmonary mass [Unknown]
  - Duodenal ulcer [Unknown]
  - Lung diffusion test abnormal [Unknown]
  - Hypoventilation [Unknown]
  - Chest discomfort [Unknown]
  - Abdominal lymphadenopathy [Unknown]
  - Dyspnoea [Unknown]
  - Alanine aminotransferase increased [Unknown]
  - Stress [Unknown]
  - Base excess decreased [Unknown]
  - Blood creatinine increased [Unknown]
  - Cough [Unknown]
  - Asthma [Unknown]
  - PO2 increased [Unknown]
  - Asthenia [Unknown]
  - Tobacco abuse [Unknown]
  - Bronchitis chronic [Unknown]
  - Dyspnoea [Unknown]
  - Dizziness [Unknown]
  - Sinus arrhythmia [Unknown]
  - Transferrin saturation decreased [Unknown]
  - Blood bicarbonate decreased [Unknown]
  - Snoring [Unknown]
  - CD4/CD8 ratio increased [Unknown]
  - Intervertebral disc protrusion [Unknown]
  - Cholelithiasis [Unknown]
  - Chronic kidney disease [Unknown]
  - Cystic lung disease [Unknown]
  - Dysphonia [Unknown]
  - PCO2 decreased [Unknown]
  - Hysterectomy [Unknown]
  - Anal fissure [Unknown]
  - Chest pain [Unknown]
  - Listless [Unknown]
  - Nausea [Unknown]
  - Palpitations [Unknown]
  - Bronchial disorder [Unknown]
  - Glutamate dehydrogenase increased [Unknown]
  - Alveolitis [Not Recovered/Not Resolved]
  - Glomerular filtration rate decreased [Unknown]
  - Fatigue [Unknown]
  - Intestinal ulcer [Unknown]
  - General physical health deterioration [Unknown]
  - Lung disorder [Unknown]
  - Mean cell haemoglobin concentration decreased [Unknown]
  - Anastomotic complication [Unknown]
  - Diarrhoea [Unknown]
  - Night sweats [Unknown]

NARRATIVE: CASE EVENT DATE: 2018
